FAERS Safety Report 18331298 (Version 2)
Quarter: 2020Q4

REPORT INFORMATION
  Report Type: Report from Study
  Country: US (occurrence: US)
  Receive Date: 20200930
  Receipt Date: 20201008
  Transmission Date: 20210113
  Serious: Yes (Hospitalization)
  Sender: FDA-Public Use
  Company Number: US-EXELIXIS-CABO-20031782

PATIENT
  Age: 70 Year
  Sex: Female
  Weight: 54.42 kg

DRUGS (2)
  1. CABOMETYX [Suspect]
     Active Substance: CABOZANTINIB S-MALATE
     Dosage: 60 MG, QD
  2. CABOMETYX [Suspect]
     Active Substance: CABOZANTINIB S-MALATE
     Indication: HEPATOCELLULAR CARCINOMA
     Dosage: 60 MG, QD
     Dates: start: 20200715

REACTIONS (22)
  - Cystitis [Unknown]
  - Diarrhoea [Unknown]
  - Hepatic enzyme increased [Unknown]
  - Dysphonia [Unknown]
  - Abdominal pain [Unknown]
  - Product dose omission issue [Unknown]
  - Drug intolerance [Unknown]
  - Weight decreased [Unknown]
  - Eructation [Unknown]
  - Vulvovaginal erythema [Unknown]
  - Dry eye [Unknown]
  - Dry skin [Unknown]
  - Dysgeusia [Unknown]
  - Sepsis [Unknown]
  - Sneezing [Unknown]
  - Rhinorrhoea [Unknown]
  - Blood pressure fluctuation [Unknown]
  - Fractured coccyx [Unknown]
  - Throat irritation [Unknown]
  - Malaise [Unknown]
  - Hypotension [Unknown]
  - Nausea [Unknown]

NARRATIVE: CASE EVENT DATE: 20200812
